FAERS Safety Report 8321870-0 (Version None)
Quarter: 2012Q2

REPORT INFORMATION
  Report Type: 
  Country: None (occurrence: None)
  Receive Date: 20120430
  Receipt Date: 20120418
  Transmission Date: 20120825
  Serious: Yes (Hospitalization)
  Sender: FDA-Public Use
  Company Number: JP-GLAXOSMITHKLINE-B0797004A

PATIENT
  Sex: Male

DRUGS (4)
  1. VITAMIN B12 [Concomitant]
     Route: 065
     Dates: end: 20120413
  2. VALTREX [Suspect]
     Indication: HERPES ZOSTER
     Dosage: 3000MG PER DAY
     Route: 048
     Dates: start: 20120410, end: 20120413
  3. ETODOLAC [Concomitant]
     Route: 048
     Dates: end: 20120413
  4. FLIVAS [Concomitant]
     Route: 048
     Dates: end: 20120413

REACTIONS (6)
  - RENAL DISORDER [None]
  - DYSLALIA [None]
  - MUSCULAR WEAKNESS [None]
  - RENAL FAILURE ACUTE [None]
  - DECREASED APPETITE [None]
  - ENCEPHALOPATHY [None]
